FAERS Safety Report 7811292-0 (Version None)
Quarter: 2011Q4

REPORT INFORMATION
  Report Type: 
  Country: None (occurrence: None)
  Receive Date: 20111012
  Receipt Date: 20111012
  Transmission Date: 20120403
  Serious: Yes (Disabling)
  Sender: FDA-Public Use
  Company Number: None

PATIENT
  Sex: Female
  Weight: 75.2971 kg

DRUGS (1)
  1. ABILIFY [Suspect]

REACTIONS (6)
  - PARKINSON'S DISEASE [None]
  - BALANCE DISORDER [None]
  - WALKING AID USER [None]
  - FALL [None]
  - EYE DISORDER [None]
  - TREATMENT FAILURE [None]
